FAERS Safety Report 17875957 (Version 2)
Quarter: 2020Q2

REPORT INFORMATION
  Report Type: Spontaneous
  Country: US (occurrence: US)
  Receive Date: 20200609
  Receipt Date: 20200611
  Transmission Date: 20200714
  Serious: No
  Sender: FDA-Public Use
  Company Number: US-TORRENT-00010254

PATIENT
  Age: 88 Year
  Sex: Female
  Weight: 73 kg

DRUGS (6)
  1. ALLEGRA [Concomitant]
     Active Substance: FEXOFENADINE HYDROCHLORIDE
     Indication: SINUS DISORDER
     Dosage: UNKNOWN
  2. ATORVASTATIN [Concomitant]
     Active Substance: ATORVASTATIN
     Indication: DYSLIPIDAEMIA
     Dosage: ONCE A DAY
     Dates: start: 20200321
  3. ETIMIBE [Concomitant]
     Indication: DYSLIPIDAEMIA
     Dosage: ONCE A DAY
     Dates: start: 20200321
  4. ATENO [Concomitant]
     Indication: HYPERTENSION
     Dosage: ONCE A DAY, LAST 5 YEARS
     Dates: start: 2015
  5. ESCITALOPRAM [Suspect]
     Active Substance: ESCITALOPRAM OXALATE
     Indication: ANXIETY
     Dosage: ONCE A DAY AT NIGHT
     Route: 048
     Dates: start: 20200226, end: 2020
  6. KLONOPIN [Concomitant]
     Active Substance: CLONAZEPAM
     Indication: ANXIETY
     Dosage: ONCE A DAY FROM LAST 10 YEARS
     Dates: start: 2010

REACTIONS (9)
  - Balance disorder [Not Recovered/Not Resolved]
  - Confusional state [Not Recovered/Not Resolved]
  - Diarrhoea [Not Recovered/Not Resolved]
  - Eye pain [Not Recovered/Not Resolved]
  - Tremor [Not Recovered/Not Resolved]
  - Feeling abnormal [Not Recovered/Not Resolved]
  - Visual impairment [Not Recovered/Not Resolved]
  - Asthenia [Not Recovered/Not Resolved]
  - Gait disturbance [Not Recovered/Not Resolved]
